FAERS Safety Report 9723032 (Version 1)
Quarter: 2013Q4

REPORT INFORMATION
  Report Type: Spontaneous
  Country: US (occurrence: US)
  Receive Date: 20131202
  Receipt Date: 20131202
  Transmission Date: 20140711
  Serious: No
  Sender: FDA-Public Use
  Company Number: US-009507513-1311USA010652

PATIENT
  Age: 49 Year
  Sex: Male

DRUGS (2)
  1. REBETOL [Suspect]
     Indication: HEPATITIS C
  2. INTERFERON (UNSPECIFIED) [Suspect]
     Indication: HEPATITIS C

REACTIONS (1)
  - Adverse event [Unknown]
